FAERS Safety Report 12998518 (Version 1)
Quarter: 2016Q4

REPORT INFORMATION
  Report Type: Spontaneous
  Country: US (occurrence: US)
  Receive Date: 20161205
  Receipt Date: 20161205
  Transmission Date: 20170207
  Serious: Yes (Other)
  Sender: FDA-Public Use
  Company Number: US-CLINIGEN GROUP PLC/ CLINIGEN HEALTHCARE LTD-E2B_00002713

PATIENT
  Age: 62 Year
  Sex: Female
  Weight: 75 kg

DRUGS (3)
  1. ETHYOL [Suspect]
     Active Substance: AMIFOSTINE
     Indication: ILL-DEFINED DISORDER
     Dosage: 350 MG 11 DOSE(S)
     Route: 042
     Dates: start: 20000417, end: 20000505
  2. ZOFRAN (ONDANSETRON) [Concomitant]
     Dosage: 8 MG 20 DAY(S)
     Route: 065
     Dates: start: 20000416, end: 20000505
  3. TAGAMET [Concomitant]
     Active Substance: CIMETIDINE
     Dosage: 400 MG 19 DAY(S)
     Route: 065
     Dates: start: 20000416, end: 20000504

REACTIONS (4)
  - Scleroderma [Not Recovered/Not Resolved]
  - Candida infection [Unknown]
  - Condition aggravated [Not Recovered/Not Resolved]
  - Dysphagia [Unknown]

NARRATIVE: CASE EVENT DATE: 20000505
